FAERS Safety Report 23970629 (Version 3)
Quarter: 2024Q3

REPORT INFORMATION
  Report Type: Report from Study
  Country: CN (occurrence: CN)
  Receive Date: 20240613
  Receipt Date: 20240821
  Transmission Date: 20241017
  Serious: Yes (Hospitalization, Other)
  Sender: BAXTER
  Company Number: CN-BAXTER-2024BAX019470

PATIENT
  Age: 72 Year
  Sex: Female
  Weight: 47.5 kg

DRUGS (11)
  1. CYCLOPHOSPHAMIDE [Suspect]
     Active Substance: CYCLOPHOSPHAMIDE
     Indication: Diffuse large B-cell lymphoma stage III
     Dosage: 1051.6 MG, EVERY 3 WEEKS, ONGOING
     Route: 042
     Dates: start: 20240419
  2. DOXORUBICIN [Suspect]
     Active Substance: DOXORUBICIN
     Indication: Diffuse large B-cell lymphoma stage III
     Dosage: 70.11 MG,EVERY 3 WEEKS, ONGOING
     Route: 042
     Dates: start: 20240419
  3. EPCORITAMAB [Suspect]
     Active Substance: EPCORITAMAB
     Indication: Diffuse large B-cell lymphoma stage III
     Dosage: 0.16 MG PRIMING DOSE; C1, D1, TOTAL, THERAPY DURATION: 1 DAYS
     Route: 058
     Dates: start: 20240419, end: 20240419
  4. EPCORITAMAB [Suspect]
     Active Substance: EPCORITAMAB
     Dosage: 16 MG RE-PRIMING DOSE, TOTAL
     Route: 065
     Dates: start: 20240430, end: 20240430
  5. EPCORITAMAB [Suspect]
     Active Substance: EPCORITAMAB
     Dosage: 0.8 MG INTERMEDIATE DOSE, TOTAL
     Route: 065
     Dates: start: 20240507, end: 20240507
  6. EPCORITAMAB [Suspect]
     Active Substance: EPCORITAMAB
     Dosage: 48 MG FULL DOSE; C1, D15, TOTAL, ONGOING
     Route: 065
     Dates: start: 20240515
  7. VINCRISTINE [Suspect]
     Active Substance: VINCRISTINE
     Indication: Diffuse large B-cell lymphoma stage III
     Dosage: 1.96 MG, EVERY 3 WEEKS, ONGOING
     Route: 042
     Dates: start: 20240419
  8. PREDNISONE [Suspect]
     Active Substance: PREDNISONE
     Indication: Diffuse large B-cell lymphoma stage III
     Dosage: 100 MG DAILY C1-6, DAY 1-5, EVERY 1 DAYS, ONGOING
     Route: 048
     Dates: start: 20240419
  9. RITUXIMAB [Suspect]
     Active Substance: RITUXIMAB
     Indication: Diffuse large B-cell lymphoma stage III
     Dosage: 525.8 MG, EVERY 3 WEEKS, ONGOING
     Route: 042
     Dates: start: 20240419
  10. ENTECAVIR [Concomitant]
     Active Substance: ENTECAVIR
     Indication: Antiviral prophylaxis
     Dosage: 0.5 MG, EVERY 1 DAYS, STOP DATE: MAY-2024
     Route: 065
     Dates: start: 20240416
  11. SULFAMETHOXAZOLE [Concomitant]
     Active Substance: SULFAMETHOXAZOLE
     Indication: Prophylaxis
     Dosage: 0.96 G, EVERY 1 DAYS, STOP DATE: MAY-2024
     Route: 065
     Dates: start: 20240416

REACTIONS (1)
  - Cytokine release syndrome [Recovered/Resolved]

NARRATIVE: CASE EVENT DATE: 20240516
